FAERS Safety Report 8571990-0 (Version None)
Quarter: 2012Q3

REPORT INFORMATION
  Report Type: 
  Country: None (occurrence: None)
  Receive Date: 20120724
  Receipt Date: 20120711
  Transmission Date: 20120928
  Serious: Yes (Death)
  Sender: FDA-Public Use
  Company Number: 2012MA008803

PATIENT
  Age: 79 Year
  Sex: Female

DRUGS (29)
  1. FUROSEMIDE [Concomitant]
  2. AMOXICILLIN AND CLAVULANATE POTASSIUM [Concomitant]
  3. BISOPROLOL FUMARATE [Concomitant]
  4. METHOTREXATE [Concomitant]
  5. FOLIC ACID [Concomitant]
  6. ACETAMINOPHEN [Concomitant]
  7. HEPARIN [Concomitant]
  8. WARFARIN SODIUM [Concomitant]
  9. AMIODARONE HCL [Concomitant]
  10. FORTISIP [Concomitant]
  11. TRAMADOL HCL [Concomitant]
  12. AMOXICILLIN [Concomitant]
  13. CLARITHROMYCIN [Concomitant]
  14. CLARITHROMYCIN [Suspect]
     Indication: PNEUMONIA
     Dosage: 500 MG;BID;PO
     Route: 048
     Dates: start: 20120512, end: 20120521
  15. ACETAMINOPHEN AND CODEINE PHOSPHATE [Concomitant]
  16. SPIRONOLACTONE [Suspect]
  17. ADENOSINE [Concomitant]
  18. DALTEPARIN SODIUM [Concomitant]
  19. METOCLOPRAMIDE [Concomitant]
  20. BUMETANIDE [Suspect]
  21. CANDESARTAN CILEXETIL [Concomitant]
  22. DICLOFENAC [Concomitant]
  23. SIMVASTATIN [Suspect]
  24. GENTAMICIN [Concomitant]
  25. OMEPRAZOLE [Concomitant]
  26. TEICOPLANIN [Concomitant]
  27. CLOTRIMAZOLE [Concomitant]
  28. ADCAL-D3 [Concomitant]
  29. DIORALYTE [Concomitant]

REACTIONS (9)
  - PULMONARY EMBOLISM [None]
  - HAEMOGLOBIN DECREASED [None]
  - HAEMODIALYSIS [None]
  - TOXIC EPIDERMAL NECROLYSIS [None]
  - ATRIAL FIBRILLATION [None]
  - RENAL FAILURE ACUTE [None]
  - VASCULITIS [None]
  - STEVENS-JOHNSON SYNDROME [None]
  - FLUID OVERLOAD [None]
